FAERS Safety Report 9080143 (Version 2)
Quarter: 2013Q1

REPORT INFORMATION
  Report Type: Spontaneous
  Country: US (occurrence: US)
  Receive Date: 20130218
  Receipt Date: 20130301
  Transmission Date: 20140127
  Serious: Yes (Hospitalization)
  Sender: FDA-Public Use
  Company Number: PHHY2013US013984

PATIENT
  Age: 45 Year
  Sex: Male

DRUGS (4)
  1. WARFARIN [Suspect]
  2. PHENYTOIN [Concomitant]
  3. DILTIAZEM [Concomitant]
  4. ALBUTEROL [Concomitant]

REACTIONS (10)
  - Gangrene [Recovering/Resolving]
  - Mental status changes [Recovering/Resolving]
  - Acute respiratory failure [Recovering/Resolving]
  - Thrombosis [Recovering/Resolving]
  - Pain in extremity [Recovering/Resolving]
  - Cyanosis [Recovering/Resolving]
  - Purpura [Recovering/Resolving]
  - Haemorrhage [Recovering/Resolving]
  - Blister [Recovering/Resolving]
  - Hypercoagulation [Recovering/Resolving]
